FAERS Safety Report 4492066-8 (Version None)
Quarter: 2004Q4

REPORT INFORMATION
  Report Type: 
  Country: None (occurrence: None)
  Receive Date: 20041029
  Receipt Date: 20041018
  Transmission Date: 20050328
  Serious: Yes (Hospitalization)
  Sender: FDA-Public Use
  Company Number: 2004-121460-NL

PATIENT
  Age: 51 Year
  Sex: Female

DRUGS (5)
  1. MIRTAZAPINE [Suspect]
     Indication: DEPRESSION
     Dosage: 30 MG OD
     Route: 048
  2. BROMAZEPAM [Suspect]
     Indication: DEPRESSION
     Dosage: 12 MG OD
     Route: 048
  3. ATORVASTATIN CALCIUM [Suspect]
     Indication: DEPRESSION
     Dosage: 20 MG OD
     Route: 048
  4. NOCTRAN 10        (CLORAZEPATE) [Suspect]
     Indication: DEPRESSION
     Dosage: 10 MG OD
     Route: 048
  5. CITALOPRAM HYDROBROMIDE [Suspect]
     Indication: DEPRESSION
     Dosage: 40 MG OD
     Route: 048

REACTIONS (2)
  - HYPERHIDROSIS [None]
  - PYREXIA [None]
